FAERS Safety Report 9051228 (Version 2)
Quarter: 2013Q1

REPORT INFORMATION
  Report Type: Spontaneous
  Country: JP (occurrence: JP)
  Receive Date: 20130206
  Receipt Date: 20130206
  Transmission Date: 20140127
  Serious: Yes (Hospitalization)
  Sender: FDA-Public Use
  Company Number: JP-SANOFI-AVENTIS-2013SA004145

PATIENT
  Age: 63 Year
  Sex: Female

DRUGS (4)
  1. TAXOTERE [Suspect]
     Indication: BREAST CANCER
     Dosage: 113?MG/BODY?EVERY 3 WEEKS
     Route: 042
     Dates: start: 20130115, end: 20130115
  2. FLUOROURACIL [Concomitant]
  3. EPIRUBICIN [Concomitant]
  4. CYCLOPHOSPHAMIDE [Concomitant]

REACTIONS (1)
  - Injection site extravasation [Not Recovered/Not Resolved]
